FAERS Safety Report 8359489-8 (Version None)
Quarter: 2012Q2

REPORT INFORMATION
  Report Type: 
  Country: None (occurrence: None)
  Receive Date: 20120515
  Receipt Date: 20120502
  Transmission Date: 20120825
  Serious: Yes (Hospitalization)
  Sender: FDA-Public Use
  Company Number: JP-ELI_LILLY_AND_COMPANY-JP201205002815

PATIENT
  Sex: Female

DRUGS (1)
  1. HUMULIN 70/30 [Suspect]
     Indication: DIABETES MELLITUS
     Dosage: UNK
     Route: 058

REACTIONS (9)
  - CHEST DISCOMFORT [None]
  - GINGIVAL PAIN [None]
  - PYREXIA [None]
  - HEADACHE [None]
  - HYPOGLYCAEMIA [None]
  - FALL [None]
  - CONTUSION [None]
  - TREMOR [None]
  - DYSURIA [None]
